FAERS Safety Report 10204539 (Version 1)
Quarter: 2014Q2

REPORT INFORMATION
  Report Type: Spontaneous
  Country: US (occurrence: US)
  Receive Date: 20140529
  Receipt Date: 20140529
  Transmission Date: 20141212
  Serious: No
  Sender: FDA-Public Use
  Company Number: US-SANOFI-AVENTIS-2013SA064587

PATIENT
  Age: 34 Year
  Sex: Female

DRUGS (2)
  1. LANTUS SOLOSTAR [Suspect]
     Dosage: 50 UNITS AT MORNING NAD 50 UNITS AT NIGHT DOSE:50 UNIT(S)
     Route: 051
     Dates: start: 20130613
  2. SOLOSTAR [Suspect]
     Dates: start: 20130613

REACTIONS (2)
  - Malaise [Unknown]
  - Somnolence [Recovering/Resolving]
